FAERS Safety Report 9859875 (Version 1)
Quarter: 2014Q1

REPORT INFORMATION
  Report Type: Spontaneous
  Country: GB (occurrence: GB)
  Receive Date: 20140131
  Receipt Date: 20140131
  Transmission Date: 20141002
  Serious: Yes (Disabling)
  Sender: FDA-Public Use
  Company Number: PHHY2014GB008262

PATIENT
  Sex: Female

DRUGS (1)
  1. PENICILLIN V POTASSIUM [Suspect]
     Indication: TONSILLITIS
     Dosage: 500 MG, QID
     Route: 048
     Dates: start: 20131225, end: 20131231

REACTIONS (2)
  - Migraine [Recovered/Resolved]
  - Condition aggravated [Unknown]
